FAERS Safety Report 10144023 (Version 1)
Quarter: 2014Q2

REPORT INFORMATION
  Report Type: Spontaneous
  Country: JP (occurrence: JP)
  Receive Date: 20140430
  Receipt Date: 20140430
  Transmission Date: 20141212
  Serious: No
  Sender: FDA-Public Use
  Company Number: JP-SUCAMPO PHARMA AMERICAS, INC-SPI201400304

PATIENT
  Sex: Male

DRUGS (1)
  1. AMITIZA [Suspect]
     Dosage: UNK
     Dates: start: 20140421

REACTIONS (1)
  - Dyspnoea [Not Recovered/Not Resolved]
